FAERS Safety Report 8352702-2 (Version None)
Quarter: 2012Q2

REPORT INFORMATION
  Report Type: 
  Country: None (occurrence: None)
  Receive Date: 20120509
  Receipt Date: 20080911
  Transmission Date: 20120825
  Serious: Yes (Hospitalization)
  Sender: FDA-Public Use
  Company Number: 2008S1000555

PATIENT
  Age: 83 Year
  Sex: Male

DRUGS (17)
  1. METAMIZOLE (METAMIZOLE) [Concomitant]
  2. IBUPROFEN [Concomitant]
  3. TAMSULOSIN HCL [Concomitant]
  4. CP-751, 871 (1280 MILLIGRAM) [Suspect]
     Indication: PROSTATE CANCER
     Dosage: (1280 MG, 1 IN 3 WK), INTRAVENOUS
     Route: 042
     Dates: start: 20071228
  5. PREDNISONE [Suspect]
     Indication: PROSTATE CANCER
     Dosage: (123.9 MG, 1 IN 3 WK), INTRAVENOUS
     Route: 042
     Dates: start: 20071227, end: 20080116
  6. ACTIQ [Concomitant]
  7. DECAPEPYL [Concomitant]
  8. MAGNESIUM HYDROXIDE TAB [Concomitant]
  9. DOCETAXEL [Suspect]
     Indication: PROSTATE CANCER
     Dosage: 1IN 3 WEEKS , INTRAVENOUS
     Route: 042
     Dates: start: 20071228
  10. MORPHINE SULFATE [Suspect]
     Dosage: 920 MG, 1 IN 1 D), ORAL
     Route: 048
     Dates: start: 20080206
  11. DURAGESIC-100 [Concomitant]
  12. EMPORTAL (LACTITOL) [Concomitant]
  13. OMEPRAZOLE [Concomitant]
  14. DIAZEPAM [Concomitant]
  15. AUGMENTIN '125' [Concomitant]
  16. METFORMIN HCL [Concomitant]
  17. PARACACETAMOL (PARACETAMOL) [Concomitant]

REACTIONS (3)
  - FAECALOMA [None]
  - HYPERGLYCAEMIA [None]
  - PERINEAL PAIN [None]
